FAERS Safety Report 7285370-1 (Version None)
Quarter: 2011Q1

REPORT INFORMATION
  Report Type: 
  Country: None (occurrence: None)
  Receive Date: 20110210
  Receipt Date: 20110204
  Transmission Date: 20110831
  Serious: Yes (Other)
  Sender: FDA-Public Use
  Company Number: FR-ROCHE-757944

PATIENT
  Sex: Male

DRUGS (2)
  1. RIVOTRIL [Suspect]
     Dosage: FREQUENCY: NOT REPORTED
     Route: 042
     Dates: start: 20090101
  2. MORPHINE SULFATE [Suspect]
     Dosage: DOSE AND FREQUENCY: NOT REPORTED
     Route: 042

REACTIONS (3)
  - PURPURA [None]
  - ANGIOPATHY [None]
  - DRUG DEPENDENCE [None]
